FAERS Safety Report 4813413-0 (Version None)
Quarter: 2005Q4

REPORT INFORMATION
  Report Type: 
  Country: None (occurrence: None)
  Receive Date: 20051028
  Receipt Date: 20051021
  Transmission Date: 20060501
  Serious: Yes (Death)
  Sender: FDA-Public Use
  Company Number: PHBS2005DE15651

PATIENT
  Age: 29 Year
  Sex: Male

DRUGS (1)
  1. IMATINIB [Suspect]
     Indication: ADENOID CYSTIC CARCINOMA

REACTIONS (4)
  - BONE PAIN [None]
  - HYPERHIDROSIS [None]
  - MALIGNANT NEOPLASM PROGRESSION [None]
  - RESPIRATORY FAILURE [None]
